FAERS Safety Report 21308913 (Version 1)
Quarter: 2022Q3

REPORT INFORMATION
  Report Type: Spontaneous
  Country: GB (occurrence: GB)
  Receive Date: 20220908
  Receipt Date: 20220908
  Transmission Date: 20221027
  Serious: No
  Sender: FDA-Public Use
  Company Number: GB-BAXTER-2022BAX019083

PATIENT
  Sex: Female

DRUGS (1)
  1. TRANSDERM SCOP [Suspect]
     Active Substance: SCOPOLAMINE
     Indication: Occupational exposure to product
     Dosage: 1 MG ONCE IN 72 HOURS, TRANSDERMAL PATCH
     Route: 065

REACTIONS (3)
  - Medication error [Unknown]
  - Occupational exposure to product [Unknown]
  - Mydriasis [Recovered/Resolved]

NARRATIVE: CASE EVENT DATE: 20220807
